FAERS Safety Report 19355390 (Version 2)
Quarter: 2021Q4

REPORT INFORMATION
  Report Type: Spontaneous
  Country: CN (occurrence: CN)
  Receive Date: 20210601
  Receipt Date: 20211022
  Transmission Date: 20220303
  Serious: Yes (Other)
  Sender: FDA-Public Use
  Company Number: CN-ROCHE-2835146

PATIENT
  Age: 61 Year
  Sex: Female

DRUGS (6)
  1. HERCEPTIN [Suspect]
     Active Substance: TRASTUZUMAB
     Indication: Breast cancer stage III
     Route: 065
     Dates: start: 20201028, end: 20210222
  2. HERCEPTIN [Suspect]
     Active Substance: TRASTUZUMAB
     Indication: Metastases to lymph nodes
     Route: 065
     Dates: start: 20210222
  3. XELODA [Suspect]
     Active Substance: CAPECITABINE
     Indication: Breast cancer stage III
     Route: 048
     Dates: start: 20210222
  4. XELODA [Suspect]
     Active Substance: CAPECITABINE
     Indication: Metastases to lymph nodes
  5. DOCETAXEL [Concomitant]
     Active Substance: DOCETAXEL
     Indication: Breast cancer stage III
     Dates: start: 20201028, end: 20210222
  6. DOCETAXEL [Concomitant]
     Active Substance: DOCETAXEL
     Indication: Metastases to lymph nodes

REACTIONS (3)
  - Myelosuppression [Unknown]
  - Hypoaesthesia [Unknown]
  - Pain in extremity [Unknown]
